FAERS Safety Report 19567926 (Version 3)
Quarter: 2021Q3

REPORT INFORMATION
  Report Type: Spontaneous
  Country: US (occurrence: US)
  Receive Date: 20210715
  Receipt Date: 20210727
  Transmission Date: 20211014
  Serious: No
  Sender: FDA-Public Use
  Company Number: US-BRISTOL-MYERS SQUIBB COMPANY-BMS-2021-069173

PATIENT
  Age: 78 Year
  Sex: Female
  Weight: 86.18 kg

DRUGS (2)
  1. ELIQUIS [Suspect]
     Active Substance: APIXABAN
     Indication: CEREBROVASCULAR ACCIDENT PROPHYLAXIS
  2. ELIQUIS [Suspect]
     Active Substance: APIXABAN
     Indication: CARDIAC PACEMAKER INSERTION
     Dosage: 2.5 MILLIGRAM, BID
     Route: 048
     Dates: start: 202105, end: 20210709

REACTIONS (4)
  - Nausea [Unknown]
  - Vomiting [Unknown]
  - Product container seal issue [Unknown]
  - Presyncope [Unknown]

NARRATIVE: CASE EVENT DATE: 202107
